FAERS Safety Report 18233164 (Version 2)
Quarter: 2020Q3

REPORT INFORMATION
  Report Type: Spontaneous
  Country: US (occurrence: US)
  Receive Date: 20200904
  Receipt Date: 20200914
  Transmission Date: 20201103
  Serious: Yes (Other)
  Sender: FDA-Public Use
  Company Number: US-009507513-2009USA001850

PATIENT

DRUGS (7)
  1. CEFTAROLINE FOSAMIL ACETATE [Suspect]
     Active Substance: CEFTAROLINE FOSAMIL
     Indication: STAPHYLOCOCCAL BACTERAEMIA
     Dosage: 0.5 X MIC
  2. CUBICIN [Suspect]
     Active Substance: DAPTOMYCIN
     Indication: STAPHYLOCOCCAL BACTERAEMIA
     Dosage: 0.5 X MIC
  3. VANCOMYCIN [Suspect]
     Active Substance: VANCOMYCIN
     Dosage: 0.75 X MIC
  4. CEFTAROLINE FOSAMIL ACETATE [Suspect]
     Active Substance: CEFTAROLINE FOSAMIL
     Dosage: UNK
  5. VANCOMYCIN [Suspect]
     Active Substance: VANCOMYCIN
     Indication: STAPHYLOCOCCAL BACTERAEMIA
     Dosage: 0.5 X MIC
  6. CUBICIN [Suspect]
     Active Substance: DAPTOMYCIN
     Dosage: 0.75 X MIC
  7. CEFTAROLINE FOSAMIL ACETATE [Suspect]
     Active Substance: CEFTAROLINE FOSAMIL
     Dosage: 0.75 X MIC

REACTIONS (1)
  - Pathogen resistance [Unknown]
